FAERS Safety Report 19648206 (Version 1)
Quarter: 2021Q3

REPORT INFORMATION
  Report Type: Spontaneous
  Country: US (occurrence: US)
  Receive Date: 20210803
  Receipt Date: 20210803
  Transmission Date: 20211014
  Serious: Yes (Hospitalization)
  Sender: FDA-Public Use
  Company Number: US-STEMLINE THERAPEUTICS, INC.-2021ST000042

PATIENT
  Age: 75 Year
  Sex: Female

DRUGS (1)
  1. ELZONRIS [Suspect]
     Active Substance: TAGRAXOFUSP-ERZS
     Indication: BLASTIC PLASMACYTOID DENDRITIC CELL NEOPLASIA
     Dosage: CYCLE ONE
     Route: 042
     Dates: start: 20210715, end: 20210719

REACTIONS (10)
  - Platelet count decreased [Recovering/Resolving]
  - Heart rate increased [Recovering/Resolving]
  - Hypophagia [Recovering/Resolving]
  - Abdominal pain [Recovering/Resolving]
  - Back pain [Recovering/Resolving]
  - Pulmonary congestion [Recovering/Resolving]
  - Confusional state [Recovering/Resolving]
  - Swelling [Unknown]
  - Agitation [Recovering/Resolving]
  - Capillary leak syndrome [Recovering/Resolving]
